FAERS Safety Report 7108645-5 (Version None)
Quarter: 2010Q4

REPORT INFORMATION
  Report Type: 
  Country: None (occurrence: None)
  Receive Date: 20101115
  Receipt Date: 20101115
  Transmission Date: 20110411
  Serious: Yes (Other)
  Sender: FDA-Public Use
  Company Number: None

PATIENT
  Age: 46 Year
  Sex: Male
  Weight: 86.1834 kg

DRUGS (1)
  1. MUCINEX [Suspect]
     Indication: NASOPHARYNGITIS
     Dosage: 1 TABLET 12 HOURS PO
     Route: 048
     Dates: start: 20101101, end: 20101103

REACTIONS (1)
  - EJACULATION DISORDER [None]
